FAERS Safety Report 7997747-7 (Version None)
Quarter: 2011Q4

REPORT INFORMATION
  Report Type: 
  Country: None (occurrence: None)
  Receive Date: 20111221
  Receipt Date: 20111219
  Transmission Date: 20120403
  Serious: Yes (Death, Hospitalization)
  Sender: FDA-Public Use
  Company Number: US-NAPPMUNDI-DEU-2011-0007907

PATIENT

DRUGS (3)
  1. MORPHINE SULFATE [Suspect]
     Indication: PAIN
     Dosage: 1 MG, Q1H
     Route: 042
  2. MORPHINE SULFATE [Suspect]
     Dosage: 2 MG, TWICE
     Route: 042
  3. MORPHINE SULFATE [Suspect]
     Dosage: 5 MG, SINGLE
     Route: 042

REACTIONS (8)
  - DELIRIUM [None]
  - INADEQUATE ANALGESIA [None]
  - UNRESPONSIVE TO STIMULI [None]
  - FALL [None]
  - SEDATION [None]
  - FEMUR FRACTURE [None]
  - DEEP VEIN THROMBOSIS [None]
  - PNEUMONIA [None]
